FAERS Safety Report 13517551 (Version 1)
Quarter: 2017Q2

REPORT INFORMATION
  Report Type: Spontaneous
  Country: US (occurrence: US)
  Receive Date: 20170505
  Receipt Date: 20170505
  Transmission Date: 20170830
  Serious: Yes (Death, Hospitalization)
  Sender: FDA-Public Use
  Company Number: None

PATIENT
  Age: 28 Year
  Sex: Female
  Weight: 51.2 kg

DRUGS (11)
  1. TRAMADOL. [Concomitant]
     Active Substance: TRAMADOL
  2. PEMBROLIZUMAB 200 MG [Suspect]
     Active Substance: PEMBROLIZUMAB
     Indication: BREAST CANCER
     Route: 042
     Dates: start: 20170330, end: 20170420
  3. TYLENOL [Concomitant]
     Active Substance: ACETAMINOPHEN
  4. DECADRON [Concomitant]
     Active Substance: DEXAMETHASONE
  5. LOMOTIL [Concomitant]
     Active Substance: ATROPINE SULFATE\DIPHENOXYLATE HYDROCHLORIDE
  6. COMPAZINE [Concomitant]
     Active Substance: PROCHLORPERAZINE MALEATE
  7. VALIUM [Concomitant]
     Active Substance: DIAZEPAM
  8. MARINOL [Concomitant]
     Active Substance: DRONABINOL
  9. IMODIUM [Concomitant]
     Active Substance: LOPERAMIDE HYDROCHLORIDE
  10. PRILOSEC [Concomitant]
     Active Substance: OMEPRAZOLE MAGNESIUM
  11. ZOFRAN [Concomitant]
     Active Substance: ONDANSETRON HYDROCHLORIDE

REACTIONS (3)
  - Metastases to central nervous system [None]
  - Brain oedema [None]
  - Cerebral haemorrhage [None]

NARRATIVE: CASE EVENT DATE: 20170426
